FAERS Safety Report 18660409 (Version 1)
Quarter: 2020Q4

REPORT INFORMATION
  Report Type: Other
  Country: FR (occurrence: FR)
  Receive Date: 20201224
  Receipt Date: 20201224
  Transmission Date: 20210114
  Serious: Yes (Life-Threatening, Hospitalization)
  Sender: FDA-Public Use
  Company Number: FR-ROCHE-2738397

PATIENT

DRUGS (2)
  1. RITUXIMAB. [Suspect]
     Active Substance: RITUXIMAB
     Indication: RHEUMATIC DISORDER
  2. RITUXIMAB. [Suspect]
     Active Substance: RITUXIMAB
     Indication: MUSCULOSKELETAL DISORDER
     Route: 065

REACTIONS (1)
  - COVID-19 [Unknown]
